FAERS Safety Report 11098747 (Version 1)
Quarter: 2015Q2

REPORT INFORMATION
  Report Type: Spontaneous
  Country: US (occurrence: US)
  Receive Date: 20150507
  Receipt Date: 20150507
  Transmission Date: 20150821
  Serious: Yes (Death, Hospitalization)
  Sender: FDA-Public Use
  Company Number: US-JNJFOC-20150500294

PATIENT
  Age: 0 Day
  Sex: Female
  Weight: 3.67 kg

DRUGS (6)
  1. ACETAMINOPHEN. [Suspect]
     Active Substance: ACETAMINOPHEN
     Indication: HEADACHE
     Dosage: AT 0242 HOURS
     Route: 064
     Dates: start: 20120418
  2. VANCOMYCIN [Suspect]
     Active Substance: VANCOMYCIN
     Indication: GUILLAIN-BARRE SYNDROME
     Route: 064
     Dates: start: 20120417
  3. VANCOMYCIN [Suspect]
     Active Substance: VANCOMYCIN
     Indication: GUILLAIN-BARRE SYNDROME
     Dosage: EVERY 12 HOURS
     Route: 064
     Dates: start: 20120417
  4. ACETAMINOPHEN. [Suspect]
     Active Substance: ACETAMINOPHEN
     Indication: HEADACHE
     Dosage: DRUG GIVEN AT 2013 HOURS
     Route: 064
     Dates: start: 20120417
  5. ACETAMINOPHEN. [Suspect]
     Active Substance: ACETAMINOPHEN
     Indication: PRODUCT USED FOR UNKNOWN INDICATION
     Dosage: AT 0242 HOURS
     Route: 064
     Dates: start: 20120418
  6. ACETAMINOPHEN. [Suspect]
     Active Substance: ACETAMINOPHEN
     Indication: PRODUCT USED FOR UNKNOWN INDICATION
     Dosage: DRUG GIVEN AT 2013 HOURS
     Route: 064
     Dates: start: 20120417

REACTIONS (11)
  - Funisitis [Unknown]
  - Asphyxia [Fatal]
  - Foetal exposure during pregnancy [Unknown]
  - Unresponsive to stimuli [Unknown]
  - Foetal heart rate deceleration abnormality [Unknown]
  - Bradycardia [Unknown]
  - Guillain-Barre syndrome [Fatal]
  - Hypotension [Unknown]
  - Amniotic cavity infection [Unknown]
  - Intrauterine infection [Fatal]
  - Bronchial haemorrhage [Fatal]

NARRATIVE: CASE EVENT DATE: 20120418
